FAERS Safety Report 7236817-8 (Version None)
Quarter: 2011Q1

REPORT INFORMATION
  Report Type: 
  Country: None (occurrence: None)
  Receive Date: 20110120
  Receipt Date: 20110117
  Transmission Date: 20110831
  Serious: Yes (Hospitalization)
  Sender: FDA-Public Use
  Company Number: BE-ABBOTT-11P-013-0694962-00

PATIENT
  Sex: Female
  Weight: 63 kg

DRUGS (10)
  1. LORAZEPAM [Concomitant]
     Indication: PRODUCT USED FOR UNKNOWN INDICATION
  2. ASPIRIN [Concomitant]
     Indication: PRODUCT USED FOR UNKNOWN INDICATION
  3. PLAVIX [Concomitant]
     Indication: PRODUCT USED FOR UNKNOWN INDICATION
  4. FRAXIPARIN [Concomitant]
     Indication: PRODUCT USED FOR UNKNOWN INDICATION
     Route: 058
  5. FOLIC ACID [Concomitant]
     Indication: RHEUMATOID ARTHRITIS
     Dosage: 5MG/WEEK
     Dates: start: 20060901
  6. SEDACID [Concomitant]
     Indication: BARRETT'S OESOPHAGUS
     Dates: start: 20080101
  7. HUMIRA [Suspect]
     Indication: RHEUMATOID ARTHRITIS
     Dates: start: 20090331
  8. DICLOFENAC SODIUM [Concomitant]
     Indication: BACK PAIN
     Dates: start: 20080101
  9. FRAXIPARIN [Concomitant]
     Route: 058
  10. LEDERTREXATE [Concomitant]
     Indication: PRODUCT USED FOR UNKNOWN INDICATION
     Dates: start: 20040421, end: 20080220

REACTIONS (3)
  - INTERMITTENT CLAUDICATION [None]
  - FEELING ABNORMAL [None]
  - FEMORAL ARTERY OCCLUSION [None]
